FAERS Safety Report 6112396-3 (Version None)
Quarter: 2009Q1

REPORT INFORMATION
  Report Type: 
  Country: None (occurrence: None)
  Receive Date: 20090312
  Receipt Date: 20090303
  Transmission Date: 20090719
  Serious: Yes (Hospitalization)
  Sender: FDA-Public Use
  Company Number: DE-TEVA-187185ISR

PATIENT
  Age: 71 Year
  Sex: Male
  Weight: 63 kg

DRUGS (10)
  1. FLUOROURACIL [Suspect]
     Indication: COLORECTAL CANCER METASTATIC
     Route: 042
     Dates: start: 20080131
  2. IRINOTECAN HCL [Suspect]
     Indication: COLORECTAL CANCER METASTATIC
     Route: 042
     Dates: start: 20080131
  3. FOLINIC ACID [Suspect]
     Indication: COLORECTAL CANCER METASTATIC
     Dates: start: 20080131
  4. BEVACIZUMAB [Suspect]
     Indication: COLORECTAL CANCER METASTATIC
     Route: 042
     Dates: start: 20080131
  5. TROPISETRON HYDROCHLORIDE [Concomitant]
     Dates: start: 20080131
  6. DEXAMETHASONE [Concomitant]
     Dates: start: 20080131
  7. GABAPENTIN [Concomitant]
  8. ALLOPURINOL [Concomitant]
  9. HYDROCHLOROTHIAZIDE [Concomitant]
  10. DOXAZOSIN MESYLATE [Concomitant]

REACTIONS (1)
  - C-REACTIVE PROTEIN INCREASED [None]
